FAERS Safety Report 13157289 (Version 1)
Quarter: 2017Q1

REPORT INFORMATION
  Report Type: Spontaneous
  Country: AT (occurrence: AT)
  Receive Date: 20170127
  Receipt Date: 20170127
  Transmission Date: 20170428
  Serious: Yes (Other)
  Sender: FDA-Public Use
  Company Number: AT-AMGEN-AUTSP2016169808

PATIENT
  Age: 34 Year
  Sex: Male
  Weight: 60.4 kg

DRUGS (35)
  1. OXALIPLATIN. [Concomitant]
     Active Substance: OXALIPLATIN
     Dosage: 149 MG, IN 500 GLUC 5%, D1, 3HRS (CYCLE 3)
     Route: 042
     Dates: start: 20161123
  2. 5 FU [Concomitant]
     Active Substance: FLUOROURACIL
     Dosage: 596 MG, IN 50 NACL ON D1 (CYCLE 4)
     Route: 040
     Dates: start: 20161207
  3. ZOFRAN [Concomitant]
     Active Substance: ONDANSETRON HYDROCHLORIDE
     Dosage: 8 MG, D1, D2-3
     Route: 048
     Dates: start: 20161207
  4. FORTECORTIN [Concomitant]
     Active Substance: DEXAMETHASONE
     Dosage: 8 MG, UNK
     Route: 048
     Dates: start: 20161207
  5. VECTIBIX [Suspect]
     Active Substance: PANITUMUMAB
     Dosage: UNK
     Route: 065
  6. VECTIBIX [Suspect]
     Active Substance: PANITUMUMAB
     Dosage: UNK
     Route: 065
  7. LEUKOVORIN [Concomitant]
     Active Substance: LEUCOVORIN SODIUM
     Dosage: 600 MG, IN 250 NACL ON D1 (CYCLE 3)
     Route: 042
     Dates: start: 20161123
  8. LEUKOVORIN [Concomitant]
     Active Substance: LEUCOVORIN SODIUM
     Dosage: 600 MG, IN 250 NACL ON D1 (CYCLE 4)
     Route: 042
     Dates: start: 20161207
  9. 5 FU [Concomitant]
     Active Substance: FLUOROURACIL
     Dosage: 1788 MG, IN 100 ML OVER 22 HR ON D1 AND D2 (CYCLE 1)
     Route: 042
     Dates: start: 20161026
  10. ZOFRAN [Concomitant]
     Active Substance: ONDANSETRON HYDROCHLORIDE
     Dosage: 8 MG, D1, D2-3
     Route: 048
     Dates: start: 20161109
  11. VECTIBIX [Suspect]
     Active Substance: PANITUMUMAB
     Indication: COLON CANCER METASTATIC
     Dosage: 362.4 MG, IN 100 ML NACL OVER 1 HR (CYCLE 1)
     Route: 042
     Dates: start: 20161026
  12. DEXA [Concomitant]
     Active Substance: DEXAMETHASONE
     Dosage: 8 MG, UNK
     Dates: start: 20161026
  13. DEXA [Concomitant]
     Active Substance: DEXAMETHASONE
     Dosage: 8 MG, UNK
     Dates: start: 20161207
  14. VECTIBIX [Suspect]
     Active Substance: PANITUMUMAB
     Dosage: 355.2 MG, IN 100 ML NACL OVER 1 HR (CYCLE 3)
     Route: 042
     Dates: start: 20161123
  15. VECTIBIX [Suspect]
     Active Substance: PANITUMUMAB
     Dosage: 370 MG, IN 100 ML NACL OVER 1 HR (CYCLE 4)
     Route: 042
     Dates: start: 20161207, end: 20161207
  16. OXALIPLATIN. [Concomitant]
     Active Substance: OXALIPLATIN
     Dosage: 151 MG, IN 500 GLUC 5%, D1, 3HRS (CYCLE 4)
     Route: 042
     Dates: start: 20161207
  17. 5 FU [Concomitant]
     Active Substance: FLUOROURACIL
     Dosage: 1788 MG, IN 100 ML OVER 22 HR ON D1 AND D2 (CYCLE 4)
     Route: 042
     Dates: start: 20161207
  18. LEUKOVORIN [Concomitant]
     Active Substance: LEUCOVORIN SODIUM
     Indication: COLON CANCER METASTATIC
     Dosage: 600 MG, IN 250 NACL ON D1 (CYCLE 1)
     Route: 042
     Dates: start: 20161026
  19. LEUKOVORIN [Concomitant]
     Active Substance: LEUCOVORIN SODIUM
     Indication: METASTASES TO LIVER
     Dosage: 600 MG, IN 250 NACL ON D1 (CYCLE 2)
     Route: 042
     Dates: start: 20161109
  20. 5 FU [Concomitant]
     Active Substance: FLUOROURACIL
     Indication: COLON CANCER METASTATIC
     Dosage: 596 MG, IN 50 NACL ON D1 (CYCLE 1)
     Route: 040
     Dates: start: 20161026
  21. 5 FU [Concomitant]
     Active Substance: FLUOROURACIL
     Dosage: 1788 MG, IN 100 ML OVER 22 HR ON D1 AND D2 (CYCLE 3)
     Route: 042
     Dates: start: 20161123
  22. ZOFRAN [Concomitant]
     Active Substance: ONDANSETRON HYDROCHLORIDE
     Dosage: 8 MG, D1, D2-3
     Route: 048
     Dates: start: 20161026
  23. FORTECORTIN [Concomitant]
     Active Substance: DEXAMETHASONE
     Dosage: 8 MG, UNK
     Route: 048
     Dates: start: 20161123
  24. DEXA [Concomitant]
     Active Substance: DEXAMETHASONE
     Dosage: 8 MG, UNK
     Dates: start: 20161123
  25. OXALIPLATIN. [Concomitant]
     Active Substance: OXALIPLATIN
     Indication: METASTASES TO LIVER
     Dosage: 149 MG, IN 500 GLUC 5%, D1, 3HRS (CYCLE 2)
     Route: 042
     Dates: start: 20161109
  26. 5 FU [Concomitant]
     Active Substance: FLUOROURACIL
     Indication: METASTASES TO LIVER
     Dosage: 596 MG, IN 50 NACL ON D1 (CYCLE 2)
     Route: 040
     Dates: start: 20161109
  27. ZOFRAN [Concomitant]
     Active Substance: ONDANSETRON HYDROCHLORIDE
     Dosage: 8 MG, D1, D2-3
     Route: 048
     Dates: start: 20161123
  28. FORTECORTIN [Concomitant]
     Active Substance: DEXAMETHASONE
     Dosage: 8 MG, UNK
     Route: 048
     Dates: start: 20161109
  29. VECTIBIX [Suspect]
     Active Substance: PANITUMUMAB
     Dosage: 362.4 MG, IN 100 ML NACL OVER 1 HR (CYCLE 2)
     Route: 042
     Dates: start: 20161109
  30. OXALIPLATIN. [Concomitant]
     Active Substance: OXALIPLATIN
     Indication: COLON CANCER METASTATIC
     Dosage: 149 MG, IN 500 GLUC 5%, D1, 3HRS (CYCLE 1)
     Route: 042
     Dates: start: 20161026
  31. 5 FU [Concomitant]
     Active Substance: FLUOROURACIL
     Dosage: 596 MG, IN 50 NACL ON D1 (CYCLE 3)
     Route: 040
     Dates: start: 20161123
  32. 5 FU [Concomitant]
     Active Substance: FLUOROURACIL
     Dosage: 1788 MG, IN 100 ML OVER 22 HR ON D1 AND D2 (CYCLE 2)
     Route: 042
     Dates: start: 20161109
  33. ZOFRAN [Concomitant]
     Active Substance: ONDANSETRON HYDROCHLORIDE
     Dosage: 8 MG, 1-0-0 D3-D5 AS NECESSARY
     Route: 048
  34. FORTECORTIN [Concomitant]
     Active Substance: DEXAMETHASONE
     Dosage: 8 MG, UNK
     Route: 048
     Dates: start: 20161026
  35. DEXA [Concomitant]
     Active Substance: DEXAMETHASONE
     Dosage: 8 MG, UNK
     Dates: start: 20161109

REACTIONS (5)
  - Hepatectomy [Unknown]
  - Skin reaction [Unknown]
  - Rash pruritic [Recovered/Resolved]
  - Dermatitis acneiform [Recovered/Resolved]
  - Skin toxicity [Unknown]

NARRATIVE: CASE EVENT DATE: 2016
